FAERS Safety Report 4526231-8 (Version None)
Quarter: 2004Q4

REPORT INFORMATION
  Report Type: 
  Country: None (occurrence: None)
  Receive Date: 20041213
  Receipt Date: 20041201
  Transmission Date: 20050328
  Serious: Yes (Other)
  Sender: FDA-Public Use
  Company Number: 2004100575

PATIENT
  Sex: Female
  Weight: 62.1428 kg

DRUGS (8)
  1. LISTERINE ANTISEPTIC MOUTHWASH (MENTHOL, METHYL SALICYLATE, EUCALYPTOL [Suspect]
     Indication: DENTAL DISORDER PROPHYLAXIS
     Dosage: 1 MOUTHFUL QD 1-2 TIMES PER WEEK, ORAL TOPICAL
     Route: 048
     Dates: start: 19840101
  2. LEVOTHYROXINE SODIUM [Concomitant]
  3. DIGOXIN [Concomitant]
  4. WARFARIN SODIUM [Concomitant]
  5. FUROSEMIDE [Concomitant]
  6. VALSARTAN (VALSARTAN) [Concomitant]
  7. ACETAMINOPHEN [Concomitant]
  8. DIAZEPAM [Concomitant]

REACTIONS (6)
  - CARDIAC OPERATION [None]
  - CHEST PAIN [None]
  - DYSGEUSIA [None]
  - KNEE ARTHROPLASTY [None]
  - POST PROCEDURAL PAIN [None]
  - POSTOPERATIVE HERNIA [None]
